FAERS Safety Report 10009742 (Version 2)
Quarter: 2014Q1

REPORT INFORMATION
  Report Type: Spontaneous
  Country: US (occurrence: US)
  Receive Date: 20140312
  Receipt Date: 20140312
  Transmission Date: 20141002
  Serious: No
  Sender: FDA-Public Use
  Company Number: US-INCYTE CORPORATION-2012IN002175

PATIENT
  Age: 82 Year
  Sex: Male
  Weight: 68.48 kg

DRUGS (8)
  1. JAKAFI [Suspect]
     Indication: MYELOFIBROSIS
     Dosage: 10 MG, BID
     Route: 048
     Dates: start: 20120511
  2. PROCARDIA [Concomitant]
  3. ATACAND [Concomitant]
  4. DYAZIDE [Concomitant]
  5. LIPITOR [Concomitant]
  6. FLOMAX [Concomitant]
  7. AVODART [Concomitant]
     Dosage: UNK
  8. ALLOPURINOL [Concomitant]

REACTIONS (1)
  - Bone pain [Unknown]
